FAERS Safety Report 6095887-3 (Version None)
Quarter: 2009Q1

REPORT INFORMATION
  Report Type: 
  Country: None (occurrence: None)
  Receive Date: 20090227
  Receipt Date: 20080708
  Transmission Date: 20090719
  Serious: No
  Sender: FDA-Public Use
  Company Number: A0736478A

PATIENT
  Age: 38 Year
  Sex: Male

DRUGS (4)
  1. LAMICTAL [Suspect]
     Indication: BIPOLAR DISORDER
     Dosage: 25MG PER DAY
     Route: 048
     Dates: start: 20080705
  2. LIPITOR [Concomitant]
  3. BENAZEPRIL HYDROCHLORIDE [Concomitant]
  4. WELLBUTRIN [Concomitant]

REACTIONS (3)
  - OEDEMA PERIPHERAL [None]
  - PRURITUS [None]
  - RASH [None]
